FAERS Safety Report 9144442 (Version 5)
Quarter: 2016Q4

REPORT INFORMATION
  Report Type: Report from Study
  Country: DE (occurrence: DE)
  Receive Date: 20130306
  Receipt Date: 20161209
  Transmission Date: 20170207
  Serious: Yes (Hospitalization, Other)
  Sender: FDA-Public Use
  Company Number: DE-ROCHE-1195624

PATIENT
  Age: 53 Year
  Sex: Male
  Weight: 102 kg

DRUGS (2)
  1. TRASTUZUMAB [Suspect]
     Active Substance: TRASTUZUMAB
     Dosage: MOST RECENT DOSE ON 25/JUN/2014 PRIOR SAE
     Route: 042
  2. TRASTUZUMAB [Suspect]
     Active Substance: TRASTUZUMAB
     Indication: OESOPHAGEAL CARCINOMA
     Dosage: LAST DOSE PRIOR TO AE 05/FEB/2013
     Route: 042
     Dates: start: 20130111, end: 20130205

REACTIONS (7)
  - Palmar-plantar erythrodysaesthesia syndrome [Recovered/Resolved]
  - Back pain [Recovered/Resolved]
  - General physical health deterioration [Recovered/Resolved]
  - Abdominal pain [Recovered/Resolved]
  - Blood urea increased [Unknown]
  - Diarrhoea [Recovered/Resolved]
  - Neutropenia [Recovered/Resolved]

NARRATIVE: CASE EVENT DATE: 20130218
